FAERS Safety Report 8742148 (Version 2)
Quarter: 2013Q1

REPORT INFORMATION
  Report Type: Spontaneous
  Country: BR (occurrence: BR)
  Receive Date: 20120824
  Receipt Date: 20130206
  Transmission Date: 20140127
  Serious: No
  Sender: FDA-Public Use
  Company Number: PHHY2012BR071163

PATIENT
  Sex: Female

DRUGS (5)
  1. FORASEQ [Suspect]
     Indication: ASTHMA
     Dosage: 2 DF, DAILY
  2. ONBREZ [Suspect]
     Indication: ASTHMA
     Dosage: 300 UG, (2 CAPSULES AT A TIME)
  3. ONBREZ [Suspect]
     Dosage: 300 UG, UNK
  4. PANTOPRAZOLE [Concomitant]
     Dosage: ?1 DF, QD
     Route: 048
  5. MOTILIUM ^BYK GULDEN^ [Concomitant]
     Dosage: 1 DF, QD
     Route: 048

REACTIONS (1)
  - Cough [Recovered/Resolved]
